FAERS Safety Report 5638193-0 (Version None)
Quarter: 2008Q1

REPORT INFORMATION
  Report Type: 
  Country: None (occurrence: None)
  Receive Date: 20080226
  Receipt Date: 20080212
  Transmission Date: 20080703
  Serious: Yes (Other)
  Sender: FDA-Public Use
  Company Number: CA-ELI_LILLY_AND_COMPANY-CA200802003484

PATIENT
  Sex: Female
  Weight: 91 kg

DRUGS (6)
  1. SOMATROPIN [Suspect]
     Indication: GROWTH HORMONE DEFICIENCY
     Dosage: 2 MG, UNK
     Route: 058
     Dates: start: 20060210, end: 20080103
  2. DDAVP (NEEDS NO REFRIGERATION) [Concomitant]
     Indication: DIABETES INSIPIDUS
     Dates: start: 20031101
  3. HYDROCORTISONE [Concomitant]
     Indication: ADRENAL INSUFFICIENCY
     Dates: start: 20031101
  4. LEVOTHYROXINE SODIUM [Concomitant]
     Indication: HYPOTHYROIDISM
     Dates: start: 20031101
  5. ESTRACE [Concomitant]
     Indication: HORMONE REPLACEMENT THERAPY
     Dates: start: 20050301
  6. PROVERA [Concomitant]
     Indication: HORMONE REPLACEMENT THERAPY
     Dates: start: 20060105

REACTIONS (1)
  - CRANIOPHARYNGIOMA [None]
